FAERS Safety Report 11727468 (Version 1)
Quarter: 2015Q4

REPORT INFORMATION
  Report Type: Spontaneous
  Country: US (occurrence: US)
  Receive Date: 20151112
  Receipt Date: 20151112
  Transmission Date: 20160304
  Serious: No
  Sender: FDA-Public Use
  Company Number: US-009507513-1511USA005395

PATIENT
  Age: 21 Year
  Sex: Female
  Weight: 46.71 kg

DRUGS (1)
  1. NEXPLANON [Suspect]
     Active Substance: ETONOGESTREL
     Indication: CONTRACEPTION
     Dosage: 1 ROD UP TO 3 YEARS
     Route: 059
     Dates: start: 20150324

REACTIONS (4)
  - Haemorrhage [Unknown]
  - Chest pain [Unknown]
  - Appetite disorder [Unknown]
  - Coital bleeding [Unknown]

NARRATIVE: CASE EVENT DATE: 201504
